FAERS Safety Report 9613409 (Version 1)
Quarter: 2013Q4

REPORT INFORMATION
  Report Type: Spontaneous
  Country: US (occurrence: US)
  Receive Date: 20131010
  Receipt Date: 20131010
  Transmission Date: 20140711
  Serious: Yes (Other)
  Sender: FDA-Public Use
  Company Number: US-ACTAVIS-2013-17603

PATIENT
  Age: 51 Year
  Sex: Male

DRUGS (3)
  1. MINOCYCLINE HCL (WATSON LABORATORIES) [Suspect]
     Indication: LYME DISEASE
     Dosage: 100 MG, BID
     Route: 048
     Dates: start: 20130916, end: 20130920
  2. CEFDINIR [Suspect]
     Indication: LYME DISEASE
     Dosage: UNK
     Route: 048
     Dates: start: 20130915, end: 20130920
  3. ERYTHROMYCIN [Suspect]
     Indication: LYME DISEASE
     Dosage: UNK, UNKNOWN
     Route: 048
     Dates: start: 20130919, end: 20130920

REACTIONS (4)
  - Anaphylactic reaction [Recovered/Resolved]
  - Dysphagia [Recovered/Resolved]
  - Rash [Recovered/Resolved]
  - Throat tightness [Recovered/Resolved]
